FAERS Safety Report 7378866-5 (Version None)
Quarter: 2011Q1

REPORT INFORMATION
  Report Type: 
  Country: None (occurrence: None)
  Receive Date: 20110328
  Receipt Date: 20110315
  Transmission Date: 20110831
  Serious: Yes (Hospitalization)
  Sender: FDA-Public Use
  Company Number: PHHY2010US70749

PATIENT
  Sex: Male

DRUGS (1)
  1. GLEEVEC [Suspect]
     Indication: CHRONIC MYELOID LEUKAEMIA
     Dosage: 600 MG, QD
     Route: 048
     Dates: start: 20090707

REACTIONS (7)
  - LEG AMPUTATION [None]
  - GANGRENE [None]
  - ABSCESS [None]
  - SEPSIS [None]
  - ESCHERICHIA INFECTION [None]
  - PERIPHERAL VASCULAR DISORDER [None]
  - ESCHERICHIA SEPSIS [None]
